FAERS Safety Report 4504606-0 (Version None)
Quarter: 2004Q4

REPORT INFORMATION
  Report Type: 
  Country: None (occurrence: None)
  Receive Date: 20041118
  Receipt Date: 20040922
  Transmission Date: 20050328
  Serious: Yes (Hospitalization)
  Sender: FDA-Public Use
  Company Number: JP-GLAXOSMITHKLINE-B0346364A

PATIENT
  Age: 48 Year
  Sex: Female

DRUGS (4)
  1. VALTREX [Suspect]
     Indication: HERPES ZOSTER
     Dosage: 1000MG THREE TIMES PER DAY
     Route: 048
     Dates: start: 20040917, end: 20040921
  2. ALUSA [Suspect]
     Dosage: 1U TWICE PER DAY
     Route: 048
     Dates: start: 20040917, end: 20040921
  3. LORCAM [Suspect]
     Indication: PAIN
     Dosage: 4MG TWICE PER DAY
     Route: 048
     Dates: start: 20040917, end: 20040921
  4. CASAL [Concomitant]
     Indication: HERPES ZOSTER
     Route: 061
     Dates: start: 20040917

REACTIONS (6)
  - HYPERTENSION [None]
  - MALAISE [None]
  - OEDEMA [None]
  - OLIGURIA [None]
  - RENAL FAILURE ACUTE [None]
  - WEIGHT INCREASED [None]
